FAERS Safety Report 13121973 (Version 1)
Quarter: 2017Q1

REPORT INFORMATION
  Report Type: Spontaneous
  Country: US (occurrence: US)
  Receive Date: 20170116
  Receipt Date: 20170116
  Transmission Date: 20170428
  Serious: Yes (Other)
  Sender: FDA-Public Use
  Company Number: None

PATIENT
  Age: 71 Year
  Sex: Male

DRUGS (1)
  1. OLARATUMAB [Suspect]
     Active Substance: OLARATUMAB
     Dates: start: 20161129

REACTIONS (5)
  - Hypotension [None]
  - Syncope [None]
  - Infusion related reaction [None]
  - Flushing [None]
  - Mental status changes [None]

NARRATIVE: CASE EVENT DATE: 20161129
